FAERS Safety Report 17977523 (Version 1)
Quarter: 2020Q3

REPORT INFORMATION
  Report Type: Spontaneous
  Country: FR (occurrence: FR)
  Receive Date: 20200703
  Receipt Date: 20200703
  Transmission Date: 20201103
  Serious: Yes (Hospitalization)
  Sender: FDA-Public Use
  Company Number: FR-ACCORD-188134

PATIENT
  Age: 67 Year
  Sex: Female
  Weight: 76 kg

DRUGS (7)
  1. IRINOTECAN ACCORD [Suspect]
     Active Substance: IRINOTECAN
     Indication: MALIGNANT PERITONEAL NEOPLASM
     Route: 041
     Dates: start: 20200303, end: 20200303
  2. SODIUM LEVOFOLINATE MYLAN [Concomitant]
     Active Substance: LEVOLEUCOVORIN DISODIUM
     Indication: PREMEDICATION
     Route: 042
     Dates: start: 20200303, end: 20200303
  3. ONDANSETRON ACCORD [Concomitant]
     Active Substance: ONDANSETRON
     Indication: PREMEDICATION
     Route: 042
     Dates: start: 20200303, end: 20200303
  4. ATROPINE SULPHATE AGUETTANT [Concomitant]
     Indication: PREMEDICATION
     Dosage: STRENGTH?0.25 MG / ML
     Route: 058
     Dates: start: 20200303, end: 20200303
  5. METHYLPREDNISOLONE MERCK [Concomitant]
     Active Substance: METHYLPREDNISOLONE
     Indication: PREMEDICATION
     Route: 042
     Dates: start: 20200303, end: 20200303
  6. OXALIPLATINE ACCORD [Concomitant]
     Active Substance: OXALIPLATIN
     Indication: MALIGNANT PERITONEAL NEOPLASM
     Route: 041
     Dates: start: 20200303, end: 20200303
  7. POLARAMINE [Suspect]
     Active Substance: DEXCHLORPHENIRAMINE MALEATE
     Indication: PREMEDICATION
     Dosage: STRENGTH: 5 MG/1 ML, SOLUTION INJECTABLE
     Route: 042
     Dates: start: 20200303, end: 20200303

REACTIONS (4)
  - Diarrhoea [Recovered/Resolved]
  - Dysphagia [Recovered/Resolved]
  - Dysuria [Recovered/Resolved]
  - Nausea [Recovered/Resolved]

NARRATIVE: CASE EVENT DATE: 20200303
